FAERS Safety Report 19296398 (Version 1)
Quarter: 2021Q2

REPORT INFORMATION
  Report Type: Spontaneous
  Country: ES (occurrence: ES)
  Receive Date: 20210524
  Receipt Date: 20210524
  Transmission Date: 20210717
  Serious: Yes (Hospitalization)
  Sender: FDA-Public Use
  Company Number: ES-TEVA-2021-ES-1914049

PATIENT
  Age: 78 Year
  Sex: Male

DRUGS (3)
  1. OLMESARTAN + AMLODIPINO + HIDROCLOROTIAZIDA [Suspect]
     Active Substance: AMLODIPINE\HYDROCHLOROTHIAZIDE\OLMESARTAN
     Indication: CARDIAC FAILURE
     Route: 048
     Dates: start: 20151124, end: 20200214
  2. ALOPURINOL (318A) [Concomitant]
     Active Substance: ALLOPURINOL
     Indication: GOUT
     Route: 048
     Dates: start: 20130424
  3. POSACONAZOL (2996A) [Suspect]
     Active Substance: POSACONAZOLE
     Indication: BRONCHOPULMONARY ASPERGILLOSIS
     Dosage: 300MILLIGRAM
     Route: 048
     Dates: start: 20191021

REACTIONS (3)
  - Cardiac failure acute [Recovering/Resolving]
  - Condition aggravated [Recovering/Resolving]
  - Oedema peripheral [Recovering/Resolving]

NARRATIVE: CASE EVENT DATE: 20200108
